FAERS Safety Report 14099719 (Version 15)
Quarter: 2018Q1

REPORT INFORMATION
  Report Type: Spontaneous
  Country: US (occurrence: US)
  Receive Date: 20171017
  Receipt Date: 20180306
  Transmission Date: 20180508
  Serious: Yes (Other)
  Sender: FDA-Public Use
  Company Number: US-PFIZER INC-2017417804

PATIENT
  Age: 72 Year
  Sex: Female
  Weight: 87.53 kg

DRUGS (5)
  1. SUTENT [Suspect]
     Active Substance: SUNITINIB MALATE
     Dosage: 25 MG, CYCLIC (1 WEEK ON AND 1 WEEK OFF)
     Dates: start: 20171110
  2. SUTENT [Suspect]
     Active Substance: SUNITINIB MALATE
     Indication: METASTATIC RENAL CELL CARCINOMA
     Dosage: 50 MG, CYCLIC (2 WEEKS ON/1 WEEK OFF)
     Route: 048
     Dates: start: 20171001
  3. SUTENT [Suspect]
     Active Substance: SUNITINIB MALATE
     Dosage: 50 MG, CYCLIC (1 WEEK ON / 1 WEEK OFF)
  4. SUTENT [Suspect]
     Active Substance: SUNITINIB MALATE
     Dosage: 50 MG, CYCLIC (TWO WEEKS ON AND ONE WEEK OFF)
     Dates: start: 201710, end: 20171025
  5. NEXIUM [Concomitant]
     Active Substance: ESOMEPRAZOLE MAGNESIUM
     Dosage: UNK

REACTIONS (62)
  - Abdominal pain upper [Unknown]
  - Mobility decreased [Unknown]
  - Bone pain [Unknown]
  - Peripheral swelling [Unknown]
  - Joint swelling [Unknown]
  - Restlessness [Unknown]
  - Sinus disorder [Unknown]
  - Neutropenia [Unknown]
  - Decreased appetite [Not Recovered/Not Resolved]
  - Feeling hot [Unknown]
  - Blood sodium increased [Unknown]
  - Pain [Unknown]
  - Muscle spasms [Unknown]
  - Nausea [Unknown]
  - Drug intolerance [Recovering/Resolving]
  - Skin discolouration [Unknown]
  - Cough [Not Recovered/Not Resolved]
  - Eye colour change [Unknown]
  - Back pain [Unknown]
  - Gingival discomfort [Unknown]
  - Condition aggravated [Not Recovered/Not Resolved]
  - Dysgeusia [Not Recovered/Not Resolved]
  - Abdominal discomfort [Unknown]
  - Feeding disorder [Unknown]
  - Dizziness [Unknown]
  - Tongue disorder [Unknown]
  - Gingival pain [Unknown]
  - Weight increased [Unknown]
  - Tooth discolouration [Unknown]
  - Oral pain [Unknown]
  - Glossodynia [Unknown]
  - Feeling cold [Unknown]
  - Infection [Unknown]
  - Ageusia [Recovering/Resolving]
  - Dyspepsia [Unknown]
  - Odynophagia [Not Recovered/Not Resolved]
  - Vision blurred [Unknown]
  - Lip blister [Unknown]
  - Anxiety [Unknown]
  - Liver function test increased [Unknown]
  - Hypoaesthesia [Unknown]
  - Thrombocytopenia [Unknown]
  - Hypersensitivity [Unknown]
  - Blood test abnormal [Unknown]
  - Malaise [Unknown]
  - Alopecia [Not Recovered/Not Resolved]
  - Fatigue [Unknown]
  - Chromaturia [Unknown]
  - Oral discomfort [Unknown]
  - Tongue discomfort [Unknown]
  - Asthenia [Unknown]
  - Hypertension [Unknown]
  - Nasopharyngitis [Unknown]
  - Rhinorrhoea [Unknown]
  - Weight decreased [Unknown]
  - Haemorrhage [Not Recovered/Not Resolved]
  - Faeces discoloured [Unknown]
  - Constipation [Unknown]
  - Body height decreased [Unknown]
  - Emotional disorder [Unknown]
  - Pain in extremity [Recovering/Resolving]
  - Bronchitis [Unknown]

NARRATIVE: CASE EVENT DATE: 201710
